FAERS Safety Report 4364302-X (Version None)
Quarter: 2004Q2

REPORT INFORMATION
  Report Type: 
  Country: None (occurrence: None)
  Receive Date: 20040525
  Receipt Date: 20040511
  Transmission Date: 20050107
  Serious: Yes (Hospitalization)
  Sender: FDA-Public Use
  Company Number: PHRM2004FR01811

PATIENT
  Age: 92 Year
  Sex: Female

DRUGS (6)
  1. NITRIDERM TTS [Suspect]
     Dosage: 5 MG/DAY
     Route: 062
     Dates: start: 20000218, end: 20000309
  2. MOPRAL [Suspect]
     Dosage: 20 MG/DAY
     Route: 048
     Dates: start: 20000218, end: 20000305
  3. CORTANCYL [Concomitant]
     Dosage: 35 MG/DAY
     Route: 048
     Dates: start: 20000218
  4. PRAXILENE [Concomitant]
     Dosage: 1.5 DF/DAY
     Route: 048
     Dates: start: 20000218
  5. SANDOCAL ^NOVARTIS^ [Concomitant]
     Dosage: 500 MG/DAY
     Route: 048
     Dates: start: 20000218
  6. DEDROGYL [Concomitant]
     Dosage: 0.15 ML/DAY
     Route: 048
     Dates: start: 20000218

REACTIONS (6)
  - COLITIS ULCERATIVE [None]
  - DIARRHOEA HAEMORRHAGIC [None]
  - ENTEROCOLITIS HAEMORRHAGIC [None]
  - INFLAMMATION [None]
  - PROCTITIS HAEMORRHAGIC [None]
  - THROMBOCYTOPENIA [None]
